FAERS Safety Report 24287703 (Version 3)
Quarter: 2024Q4

REPORT INFORMATION
  Report Type: Spontaneous
  Country: US (occurrence: US)
  Receive Date: 20240905
  Receipt Date: 20241028
  Transmission Date: 20250115
  Serious: No
  Sender: ELI LILLY AND COMPANY
  Company Number: US-ELI_LILLY_AND_COMPANY-US202409001886

PATIENT
  Age: 59 Year
  Sex: Female

DRUGS (6)
  1. TALTZ [Suspect]
     Active Substance: IXEKIZUMAB
     Indication: Psoriatic arthropathy
     Dosage: UNK UNK, UNKNOWN
     Route: 065
     Dates: start: 20240805
  2. TALTZ [Suspect]
     Active Substance: IXEKIZUMAB
     Indication: Rheumatoid arthritis
     Dosage: 80 MG, OTHER (EVERY FOUR WEEKS)
     Route: 065
     Dates: start: 20240905
  3. TALTZ [Suspect]
     Active Substance: IXEKIZUMAB
     Indication: Osteoporosis
  4. TALTZ [Suspect]
     Active Substance: IXEKIZUMAB
     Indication: Fibromyalgia
  5. TALTZ [Suspect]
     Active Substance: IXEKIZUMAB
     Indication: Osteoarthritis
  6. HUMIRA [Concomitant]
     Active Substance: ADALIMUMAB
     Indication: Product used for unknown indication

REACTIONS (5)
  - Gastroenteritis viral [Unknown]
  - Cough [Unknown]
  - Pulmonary congestion [Unknown]
  - Hypersomnia [Unknown]
  - Influenza [Unknown]
